FAERS Safety Report 18369150 (Version 4)
Quarter: 2021Q1

REPORT INFORMATION
  Report Type: Report from Study
  Country: None (occurrence: TR)
  Receive Date: 20201011
  Receipt Date: 20210110
  Transmission Date: 20210419
  Serious: Yes (Hospitalization)
  Sender: FDA-Public Use
  Company Number: TR-ABBVIE-20K-161-3596813-00

PATIENT
  Age: 70 Year
  Sex: Male
  Weight: 85 kg

DRUGS (4)
  1. DUODOPA [Suspect]
     Active Substance: CARBIDOPA\LEVODOPA
     Dosage: MORNING DOSE (ML) 2.50 CONTINUOUS DOSE (ML) 1.70 EXTRA DOSE (ML) 0.50
     Route: 050
     Dates: start: 20201005, end: 20201030
  2. DUODOPA [Suspect]
     Active Substance: CARBIDOPA\LEVODOPA
     Indication: PARKINSON^S DISEASE
     Dosage: MORNING DOSE (ML) 2.50 CONTINUOUS DOSE (ML)  1.40 EXTRA DOSE (ML)  0.50
     Route: 050
     Dates: start: 20200930, end: 20201005
  3. NOVASOURCE GI CONTROL [Concomitant]
     Indication: MALNUTRITION
     Route: 050
     Dates: start: 20200905
  4. DUODOPA [Suspect]
     Active Substance: CARBIDOPA\LEVODOPA
     Dosage: MORNING DOSE (ML): 2.50 CONTINUOUS DOSE (ML): 2.00 EXTRA DOSE?(ML): 0.50
     Route: 050
     Dates: start: 20201030

REACTIONS (3)
  - Somnolence [Recovered/Resolved]
  - C-reactive protein increased [Recovered/Resolved]
  - General physical health deterioration [Recovered/Resolved]

NARRATIVE: CASE EVENT DATE: 20201002
